FAERS Safety Report 23266276 (Version 2)
Quarter: 2023Q4

REPORT INFORMATION
  Report Type: Spontaneous
  Country: JP (occurrence: JP)
  Receive Date: 20231206
  Receipt Date: 20231207
  Transmission Date: 20240109
  Serious: No
  Sender: FDA-Public Use
  Company Number: JP-ASTELLAS-2023JP013163

PATIENT
  Sex: Female

DRUGS (3)
  1. ZOLPIDEM TARTRATE [Suspect]
     Active Substance: ZOLPIDEM TARTRATE
     Indication: Product used for unknown indication
     Dosage: UNK
     Route: 048
  2. POTASSIUM [Concomitant]
     Active Substance: POTASSIUM
  3. DONEPEZIL [Concomitant]
     Active Substance: DONEPEZIL
     Indication: Dementia Alzheimer^s type

REACTIONS (1)
  - Cognitive disorder [Unknown]
